FAERS Safety Report 8313961-5 (Version None)
Quarter: 2012Q2

REPORT INFORMATION
  Report Type: 
  Country: None (occurrence: None)
  Receive Date: 20120426
  Receipt Date: 20120420
  Transmission Date: 20120825
  Serious: Yes (Other)
  Sender: FDA-Public Use
  Company Number: US-BAYER-2012-009175

PATIENT
  Age: 42 Year
  Sex: Female
  Weight: 79.365 kg

DRUGS (17)
  1. PROTONIX [Concomitant]
     Dosage: 40 MG, UNK
     Dates: start: 20100226
  2. YASMIN [Suspect]
     Indication: CONTRACEPTION
     Dosage: UNK
     Route: 048
     Dates: start: 20030101, end: 20100225
  3. BIAXIN [Concomitant]
     Dosage: 500 MG, UNK
     Dates: start: 20100226
  4. AMITRIPTYLINE HCL [Concomitant]
     Dosage: 10 MG, UNK
     Dates: start: 20090921, end: 20091202
  5. TRAMADOL HCL [Concomitant]
     Dosage: 50 MG, UNK
     Dates: start: 20100201
  6. MECLIZINE [Concomitant]
     Dosage: 25 MG, UNK
     Dates: start: 20100131
  7. ATIVAN [Concomitant]
     Dosage: 0.5 MG, UNK
     Dates: start: 20100226
  8. ALLEGRA [Concomitant]
     Dosage: 180 MG, UNK
     Dates: start: 20100226
  9. ALBUTEROL [Concomitant]
     Dosage: UNK UNK, PRN
     Dates: start: 20100226
  10. CYCLOBENZAPRINE [Concomitant]
     Dosage: 10 MG, UNK
     Dates: start: 20100126
  11. SEREVANT INHALER [Concomitant]
     Dosage: UNK UNK, BID
     Dates: start: 20100226
  12. FLOVENT [Concomitant]
     Dosage: UNK UNK, BID
     Dates: start: 20100226
  13. SINGULAIR [Concomitant]
     Dosage: 10 MG, UNK
     Dates: start: 20100226
  14. THEOPHYLLINE [Concomitant]
     Dosage: 200 MG, UNK
     Dates: start: 20100226
  15. DROSPIRENONE AND ETHINYL ESTRADIOL [Suspect]
     Indication: CONTRACEPTION
     Dosage: UNK
     Route: 048
     Dates: start: 20030101, end: 20100225
  16. VICODIN [Concomitant]
     Dosage: UNK
     Dates: start: 20100226
  17. MULTI-VITAMIN [Concomitant]
     Dosage: UNK UNK, QD
     Dates: start: 20100226

REACTIONS (5)
  - DEEP VEIN THROMBOSIS [None]
  - THROMBOSIS [None]
  - INJURY [None]
  - SCAR [None]
  - MENTAL DISORDER [None]
